FAERS Safety Report 13981671 (Version 2)
Quarter: 2017Q3

REPORT INFORMATION
  Report Type: Spontaneous
  Country: US (occurrence: US)
  Receive Date: 20170918
  Receipt Date: 20170921
  Transmission Date: 20171128
  Serious: No
  Sender: FDA-Public Use
  Company Number: US-PFIZER INC-2017401194

PATIENT
  Age: 56 Year
  Sex: Male
  Weight: 78.47 kg

DRUGS (7)
  1. LIPITOR [Concomitant]
     Active Substance: ATORVASTATIN CALCIUM
     Indication: BLOOD CHOLESTEROL INCREASED
     Dosage: 10 MG, DAILY
     Route: 048
  2. LYRICA [Suspect]
     Active Substance: PREGABALIN
     Indication: HYPERSENSITIVITY
  3. LIPITOR [Concomitant]
     Active Substance: ATORVASTATIN CALCIUM
     Dosage: 20 MG, 1X/DAY
     Route: 048
  4. PRISTIQ EXTENDED-RELEASE [Concomitant]
     Active Substance: DESVENLAFAXINE SUCCINATE
     Indication: DEPRESSION
     Dosage: 50 MG, 1X/DAY
     Route: 048
  5. ATIVAN [Concomitant]
     Active Substance: LORAZEPAM
     Indication: ANXIETY DISORDER
     Dosage: 1 MG, 3X/DAY
     Route: 048
  6. LYRICA [Suspect]
     Active Substance: PREGABALIN
     Indication: ILL-DEFINED DISORDER
  7. LYRICA [Suspect]
     Active Substance: PREGABALIN
     Indication: NERVOUS SYSTEM DISORDER
     Dosage: 75 MG, 2X/DAY
     Route: 048
     Dates: start: 20170911, end: 20170912

REACTIONS (5)
  - Lethargy [Recovered/Resolved]
  - Sinusitis [Recovering/Resolving]
  - Drug ineffective for unapproved indication [Unknown]
  - Feeling abnormal [Recovered/Resolved]
  - Malaise [Unknown]

NARRATIVE: CASE EVENT DATE: 201709
